FAERS Safety Report 7728233-7 (Version None)
Quarter: 2011Q3

REPORT INFORMATION
  Report Type: 
  Country: None (occurrence: None)
  Receive Date: 20110905
  Receipt Date: 20110826
  Transmission Date: 20111222
  Serious: Yes (Hospitalization, Other)
  Sender: FDA-Public Use
  Company Number: PHEH2008US00461

PATIENT
  Sex: Male
  Weight: 136.6 kg

DRUGS (45)
  1. INH [Concomitant]
     Dosage: UNK
  2. ACYCLOVIR [Concomitant]
     Dosage: UNK
  3. EPOGEN [Concomitant]
     Dosage: UNK
  4. FAMVIR                                  /NET/ [Concomitant]
     Dosage: UNK
  5. FLUCONAZOLE [Concomitant]
     Dosage: UNK
  6. CALCIUM CARBONATE [Concomitant]
     Dosage: UNK
  7. ASPIRIN [Concomitant]
  8. DAPSONE [Concomitant]
     Dosage: 100 MG, UNK
  9. CLOTRIMAZOLE ^POLFA^ [Concomitant]
     Dosage: UNK
  10. MYSOLINE [Concomitant]
     Dosage: UNK
  11. CARBIDOPA + LEVODOPA [Concomitant]
     Dosage: UNK
  12. MULTI-VITAMINS [Concomitant]
  13. PROVENTIL [Concomitant]
  14. AREDIA [Suspect]
     Dosage: UNK
     Dates: end: 20051111
  15. ALBUTEROL SULFATE AUTOHALER [Concomitant]
     Dosage: UNK
  16. BACTRIM [Concomitant]
     Dosage: UNK
  17. LUNESTA [Concomitant]
  18. MAGNESIUM [Concomitant]
  19. MORPHINE [Concomitant]
  20. AREDIA [Suspect]
     Dosage: UNK
     Dates: start: 20050101
  21. FLURAZEPAM [Concomitant]
     Dosage: 30 MG, UNK
  22. SEREVENT [Concomitant]
     Dosage: UNK
  23. PENICILLIN VK [Concomitant]
     Dosage: UNK
  24. OMEPRAZOLE [Concomitant]
     Dosage: UNK
  25. VITAMIN B6 [Concomitant]
  26. ZOMETA [Suspect]
     Dosage: 4 MG, UNK
     Dates: start: 20030110, end: 20030506
  27. CIPRO [Concomitant]
     Dosage: 500 MG, UNK
  28. AMOXICILLIN [Concomitant]
     Dosage: 500 MG, UNK
  29. ZANTAC [Concomitant]
     Dosage: 150 MG, UNK
  30. ESZOPICLONE [Concomitant]
     Dosage: 2 MG, UNK
  31. ISONIAZID [Concomitant]
  32. AREDIA [Suspect]
     Dosage: 90 MG, QMO
     Route: 042
     Dates: start: 20000216, end: 20040101
  33. FLUZONE [Concomitant]
     Dosage: UNK
  34. RANITIN [Concomitant]
     Dosage: UNK
  35. VITAMIN D [Concomitant]
  36. ZOMETA [Suspect]
     Dosage: 4 MG, UNK
     Route: 042
     Dates: start: 20040101
  37. PREDNISONE [Concomitant]
  38. LOPROX [Concomitant]
     Dosage: UNK
  39. TOBRADEX [Concomitant]
     Dosage: UNK
  40. BACITRACIN OPHTHALMIC OINTMENT [Concomitant]
     Dosage: UNK
  41. SINEMET [Concomitant]
     Dosage: UNK
  42. DALMANE [Concomitant]
     Dosage: 40 MG, UNK
  43. SELENIUM [Concomitant]
  44. SULFAMETHIZOLE TAB [Concomitant]
  45. PRILOSEC [Concomitant]

REACTIONS (50)
  - OSTEITIS [None]
  - IMPAIRED HEALING [None]
  - ASTIGMATISM [None]
  - RETINOPATHY [None]
  - ENCHONDROMA [None]
  - FATIGUE [None]
  - HYPOGAMMAGLOBULINAEMIA [None]
  - OSTEOPENIA [None]
  - VISUAL ACUITY REDUCED [None]
  - INTERVERTEBRAL DISC DEGENERATION [None]
  - ANHEDONIA [None]
  - CYST [None]
  - BONE LESION [None]
  - POLYP COLORECTAL [None]
  - NEUROPATHY PERIPHERAL [None]
  - PAIN [None]
  - SPINAL DEFORMITY [None]
  - BONE LOSS [None]
  - ANXIETY [None]
  - BONE DISORDER [None]
  - SWELLING [None]
  - POOR PERSONAL HYGIENE [None]
  - TOOTH ABSCESS [None]
  - DENTAL PROSTHESIS USER [None]
  - DIVERTICULITIS [None]
  - MASTICATION DISORDER [None]
  - CELLULITIS [None]
  - WOUND DEHISCENCE [None]
  - GOITRE [None]
  - HEPATOMEGALY [None]
  - OSTEONECROSIS OF JAW [None]
  - INJURY [None]
  - X-RAY ABNORMAL [None]
  - PLASMACYTOSIS [None]
  - OSTEOSCLEROSIS [None]
  - EXOSTOSIS [None]
  - FISTULA [None]
  - DENTURE WEARER [None]
  - SKIN LESION [None]
  - EDENTULOUS [None]
  - TONGUE DISORDER [None]
  - AORTIC DISORDER [None]
  - RIB FRACTURE [None]
  - RETINAL TEAR [None]
  - AZOTAEMIA [None]
  - GINGIVITIS [None]
  - ANAEMIA [None]
  - GINGIVAL RECESSION [None]
  - INFECTION [None]
  - PROSTATIC SPECIFIC ANTIGEN INCREASED [None]
